FAERS Safety Report 4652026-0 (Version None)
Quarter: 2005Q2

REPORT INFORMATION
  Report Type: 
  Country: None (occurrence: None)
  Receive Date: 20050502
  Receipt Date: 20050415
  Transmission Date: 20051028
  Serious: Yes (Hospitalization, Other)
  Sender: FDA-Public Use
  Company Number: 2004BI000103

PATIENT
  Age: 57 Year
  Sex: Male
  Weight: 79.3795 kg

DRUGS (5)
  1. AVONEX [Suspect]
     Indication: MULTIPLE SCLEROSIS
     Dosage: 30 UG;QW; IM
     Route: 030
     Dates: start: 19970101, end: 20030101
  2. AVONEX [Suspect]
     Indication: MULTIPLE SCLEROSIS
     Dosage: 30 UG; QW; IM
     Route: 030
     Dates: start: 20030101
  3. MOTRIN [Concomitant]
  4. HYDROCODONE BITARTRATE [Concomitant]
  5. ULTRAM [Concomitant]

REACTIONS (9)
  - BACK PAIN [None]
  - BLOOD DISORDER [None]
  - BLOOD POTASSIUM INCREASED [None]
  - DEHYDRATION [None]
  - GASTROENTERITIS VIRAL [None]
  - NEPHRITIS INTERSTITIAL [None]
  - PAIN [None]
  - RENAL FAILURE ACUTE [None]
  - RESTLESS LEGS SYNDROME [None]
